FAERS Safety Report 10592377 (Version 1)
Quarter: 2014Q4

REPORT INFORMATION
  Report Type: Spontaneous
  Country: IT (occurrence: None)
  Receive Date: 20141117
  Receipt Date: 20141117
  Transmission Date: 20150529
  Serious: Yes (Other)
  Sender: FDA-Public Use
  Company Number: 2014SGN01445

PATIENT

DRUGS (3)
  1. ACETAMINOPHEN (ACETAMINOPHEN) [Concomitant]
     Active Substance: ACETAMINOPHEN
  2. ADCETRIS [Suspect]
     Active Substance: BRENTUXIMAB VEDOTIN
     Indication: HODGKIN^S DISEASE
     Dosage: 1.8 MG/KG, Q21D, INTRAVEOUS
     Route: 042
  3. CHLORPHENAMINE (CHLORPHENAMINE) [Concomitant]

REACTIONS (1)
  - Herpes ophthalmic [None]
